FAERS Safety Report 9997730 (Version 1)
Quarter: 2014Q1

REPORT INFORMATION
  Report Type: Spontaneous
  Country: US (occurrence: US)
  Receive Date: 20140311
  Receipt Date: 20140311
  Transmission Date: 20141002
  Serious: No
  Sender: FDA-Public Use
  Company Number: US-PFIZER INC-2014066888

PATIENT
  Age: 65 Year
  Sex: Female
  Weight: 60.32 kg

DRUGS (3)
  1. SUTENT [Suspect]
     Indication: RENAL CANCER
     Dosage: UNK, 1X/DAY
     Dates: start: 20140219, end: 2014
  2. SUTENT [Suspect]
     Dosage: UNK, 1X/DAY
     Dates: start: 201403
  3. METOPROLOL [Concomitant]
     Indication: HYPERTENSION
     Dosage: 50 MG, 2X/DAY

REACTIONS (3)
  - Pain in extremity [Unknown]
  - Local swelling [Unknown]
  - Contusion [Unknown]
